FAERS Safety Report 7600336-7 (Version None)
Quarter: 2011Q3

REPORT INFORMATION
  Report Type: 
  Country: None (occurrence: None)
  Receive Date: 20110706
  Receipt Date: 20110706
  Transmission Date: 20111222
  Serious: Yes (Other)
  Sender: FDA-Public Use
  Company Number: None

PATIENT
  Sex: Female
  Weight: 82.1011 kg

DRUGS (1)
  1. IMITREX [Suspect]
     Indication: MIGRAINE
     Dosage: 100 MG EVERY 2 HOURS ORALLY
     Route: 048
     Dates: start: 20100401, end: 20100501

REACTIONS (7)
  - PRODUCT SUBSTITUTION ISSUE [None]
  - IMPAIRED WORK ABILITY [None]
  - NAUSEA [None]
  - PHOTOPHOBIA [None]
  - HYPERACUSIS [None]
  - NO THERAPEUTIC RESPONSE [None]
  - VOMITING [None]
